FAERS Safety Report 8008622-6 (Version None)
Quarter: 2011Q4

REPORT INFORMATION
  Report Type: 
  Country: None (occurrence: None)
  Receive Date: 20111227
  Receipt Date: 20111213
  Transmission Date: 20120403
  Serious: Yes (Hospitalization, Other)
  Sender: FDA-Public Use
  Company Number: CA-ROCHE-1023828

PATIENT
  Sex: Male

DRUGS (6)
  1. EPIPEN [Concomitant]
  2. XOLAIR [Suspect]
     Indication: ASTHMA
     Route: 058
     Dates: start: 20111115
  3. ZENHALE [Concomitant]
  4. VENTOLIN [Concomitant]
  5. OMNARIS [Concomitant]
  6. ALVESCO [Concomitant]

REACTIONS (5)
  - FATIGUE [None]
  - ASTHMA [None]
  - ABDOMINAL DISCOMFORT [None]
  - HEADACHE [None]
  - BLOOD PRESSURE DECREASED [None]
